FAERS Safety Report 15981432 (Version 1)
Quarter: 2019Q1

REPORT INFORMATION
  Report Type: Spontaneous
  Country: CH (occurrence: CH)
  Receive Date: 20190219
  Receipt Date: 20190219
  Transmission Date: 20190418
  Serious: Yes (Other)
  Sender: FDA-Public Use
  Company Number: CH-BAYER-2019-029475

PATIENT
  Age: 20 Year
  Sex: Male

DRUGS (1)
  1. GADOVIST [Suspect]
     Active Substance: GADOBUTROL
     Indication: NUCLEAR MAGNETIC RESONANCE IMAGING BRAIN
     Dosage: UNK
     Route: 041
     Dates: start: 201901

REACTIONS (9)
  - Muscular weakness [None]
  - Tremor [None]
  - Contrast media toxicity [None]
  - Hyperhidrosis [None]
  - Neck pain [None]
  - Myalgia [None]
  - Gait disturbance [None]
  - Headache [None]
  - Pain [None]

NARRATIVE: CASE EVENT DATE: 201901
